FAERS Safety Report 4567000-2 (Version None)
Quarter: 2005Q1

REPORT INFORMATION
  Report Type: 
  Country: None (occurrence: None)
  Receive Date: 20050201
  Receipt Date: 20040302
  Transmission Date: 20050727
  Serious: Yes (Other)
  Sender: FDA-Public Use
  Company Number: US-BRISTOL-MYERS SQUIBB COMPANY-12523601

PATIENT
  Age: 46 Year
  Sex: Female

DRUGS (20)
  1. STADOL [Suspect]
  2. HYDROCODONE TARTRATE+ACETAMINOPHEN [Concomitant]
  3. PROMETHAZINE HCL [Concomitant]
  4. PHENERGAN [Concomitant]
  5. CLONAZEPAM [Concomitant]
  6. MEPROZINE [Concomitant]
  7. PREDNISONE [Concomitant]
  8. PROCHLORPERAZINE [Concomitant]
  9. PROPOXYPHENE [Concomitant]
  10. TIAZAC [Concomitant]
  11. PRILOSEC [Concomitant]
  12. LORAZEPAM [Concomitant]
  13. CARISOPRODOL [Concomitant]
  14. NEURONTIN [Concomitant]
  15. PREMARIN [Concomitant]
  16. FUROSEMIDE [Concomitant]
  17. ALPRAZOLAM [Concomitant]
  18. AMBIEN [Concomitant]
  19. ACETAMINOPHEN AND CODEINE PHOSPHATE [Concomitant]
  20. ULTRAM [Concomitant]

REACTIONS (1)
  - DEPENDENCE [None]
